FAERS Safety Report 6657942-6 (Version None)
Quarter: 2010Q1

REPORT INFORMATION
  Report Type: 
  Country: None (occurrence: None)
  Receive Date: 20100322
  Receipt Date: 20090610
  Transmission Date: 20100710
  Serious: Yes (Other)
  Sender: FDA-Public Use
  Company Number: 2009US-24017

PATIENT
  Sex: Male

DRUGS (2)
  1. ISOTRETINOIN [Suspect]
     Indication: ACNE CYSTIC
     Dosage: 40 MG, QD, ORAL : 40 MG, QD, ORAL
     Route: 048
     Dates: start: 20090407
  2. CLARAVIS [Suspect]
     Indication: ACNE CYSTIC
     Dosage: 40 MG, ORAL
     Route: 048
     Dates: start: 20090114

REACTIONS (1)
  - WHITE BLOOD CELL COUNT DECREASED [None]
